FAERS Safety Report 21609452 (Version 2)
Quarter: 2023Q1

REPORT INFORMATION
  Report Type: Spontaneous
  Country: US (occurrence: None)
  Receive Date: 20221117
  Receipt Date: 20230105
  Transmission Date: 20230417
  Serious: No
  Sender: FDA-Public Use
  Company Number: 2022A352851

PATIENT
  Sex: Male

DRUGS (1)
  1. TEZSPIRE [Suspect]
     Active Substance: TEZEPELUMAB-EKKO
     Indication: Asthma
     Route: 058

REACTIONS (5)
  - Urticaria [Unknown]
  - Eye disorder [Unknown]
  - Arthralgia [Unknown]
  - Oropharyngeal pain [Unknown]
  - Eye pain [Unknown]

NARRATIVE: CASE EVENT DATE: 20221009
